FAERS Safety Report 6291975-7 (Version None)
Quarter: 2009Q3

REPORT INFORMATION
  Report Type: 
  Country: None (occurrence: None)
  Receive Date: 20090729
  Receipt Date: 20090721
  Transmission Date: 20100115
  Serious: No
  Sender: FDA-Public Use
  Company Number: 2009008717

PATIENT
  Sex: Female

DRUGS (3)
  1. FENTORA [Suspect]
     Indication: ADENOMYOSIS
     Dosage: (400 MCG),BU
     Route: 002
  2. ACTIQ [Suspect]
     Indication: ADENOMYOSIS
     Dosage: (400 MCG),BU
     Route: 002
  3. OPANA [Concomitant]

REACTIONS (3)
  - CONTRAINDICATION TO MEDICAL TREATMENT [None]
  - DRUG PRESCRIBING ERROR [None]
  - MEDICATION ERROR [None]
